FAERS Safety Report 4359638-2 (Version None)
Quarter: 2004Q2

REPORT INFORMATION
  Report Type: 
  Country: None (occurrence: None)
  Receive Date: 20040517
  Receipt Date: 20040517
  Transmission Date: 20050107
  Serious: Yes (Death)
  Sender: FDA-Public Use
  Company Number: None

PATIENT
  Age: 74 Year
  Sex: Female
  Weight: 88 kg

DRUGS (22)
  1. REMERON [Suspect]
     Indication: DEPRESSION
     Dosage: 7.5-22.5 MG HS ORAL
     Route: 048
     Dates: start: 20040415, end: 20040503
  2. AVANDIA [Suspect]
     Indication: DIABETES MELLITUS NON-INSULIN-DEPENDENT
     Dosage: 4-8 MG DAILY ORAL
     Route: 048
     Dates: start: 20040331, end: 20040503
  3. RITALIN [Concomitant]
  4. DILANTIN [Concomitant]
  5. BEXTRA [Concomitant]
  6. COUMADIN [Concomitant]
  7. LEXAPRO [Concomitant]
  8. PEPCID [Concomitant]
  9. PREVACID [Concomitant]
  10. HYDROCHLOROTHIAZIDE [Concomitant]
  11. LEVAQUIN [Concomitant]
  12. ACTONEL [Concomitant]
  13. WYSEGIC [Concomitant]
  14. ALTACE [Concomitant]
  15. NORVASC [Concomitant]
  16. OS-CAL [Concomitant]
  17. CATAPRES [Concomitant]
  18. COLACE [Concomitant]
  19. PERSANTIN INJ [Concomitant]
  20. FLONASE [Concomitant]
  21. GLYBURIDE [Concomitant]
  22. ATIVAN [Concomitant]

REACTIONS (6)
  - ASTHENIA [None]
  - DEPRESSED LEVEL OF CONSCIOUSNESS [None]
  - DYSARTHRIA [None]
  - LIVER DISORDER [None]
  - OEDEMA [None]
  - RENAL IMPAIRMENT [None]
